FAERS Safety Report 16683286 (Version 2)
Quarter: 2020Q4

REPORT INFORMATION
  Report Type: Other
  Country: CA (occurrence: CA)
  Receive Date: 20190808
  Receipt Date: 20201123
  Transmission Date: 20210113
  Serious: Yes (Hospitalization)
  Sender: FDA-Public Use
  Company Number: CA-SAOL THERAPEUTICS-2019SAO00308

PATIENT
  Sex: Female

DRUGS (31)
  1. ENBREL [Suspect]
     Active Substance: ETANERCEPT
     Indication: RHEUMATOID ARTHRITIS
     Dosage: 50 MG, 1X/WEEK
     Route: 058
  2. ARAVA [Suspect]
     Active Substance: LEFLUNOMIDE
     Indication: PRODUCT USED FOR UNKNOWN INDICATION
  3. CIMZIA [Suspect]
     Active Substance: CERTOLIZUMAB PEGOL
     Indication: PRODUCT USED FOR UNKNOWN INDICATION
     Route: 058
  4. LIPITOR [Concomitant]
     Active Substance: ATORVASTATIN CALCIUM
     Dosage: 10 MG, 1X/WEEK
     Route: 048
  5. SODIUM BORATE [Suspect]
     Active Substance: SODIUM BORATE
     Indication: PRODUCT USED FOR UNKNOWN INDICATION
  6. BENZALKONIUM CHLORIDE/ DIPHENHYDRAMINE HYDROCHLORIDE/ PHENYLEPHRINE HY [Suspect]
     Active Substance: BENZALKONIUM CHLORIDE\DIPHENHYDRAMINE HYDROCHLORIDE\PHENYLEPHRINE HYDROCHLORIDE
     Indication: PRODUCT USED FOR UNKNOWN INDICATION
  7. METHOTREXATE. [Suspect]
     Active Substance: METHOTREXATE
     Dosage: 15 MG, 1X/WEEK
     Route: 048
  8. TOFACITINIB CITRATE [Suspect]
     Active Substance: TOFACITINIB CITRATE
     Dosage: 5 MG, 2X/DAY
     Route: 058
  9. RITUXIMAB. [Suspect]
     Active Substance: RITUXIMAB
     Indication: PRODUCT USED FOR UNKNOWN INDICATION
  10. ACTEMRA [Suspect]
     Active Substance: TOCILIZUMAB
     Indication: RHEUMATOID ARTHRITIS
     Dosage: 8 MG/KG; 1X/MONTH; INTRAVENOUS
     Route: 042
  11. BENZALKONIUM CHLORIDE. [Suspect]
     Active Substance: BENZALKONIUM CHLORIDE
     Indication: PRODUCT USED FOR UNKNOWN INDICATION
  12. ENBREL [Suspect]
     Active Substance: ETANERCEPT
     Dosage: 40 MG, 1X/WEEK
     Route: 058
  13. HYDROXYCHLOROQUINE SULFATE. [Suspect]
     Active Substance: HYDROXYCHLOROQUINE SULFATE
     Indication: PRODUCT USED FOR UNKNOWN INDICATION
     Dosage: 200 MG, 2X/DAY
  14. TOFACITINIB CITRATE [Suspect]
     Active Substance: TOFACITINIB CITRATE
     Indication: RHEUMATOID ARTHRITIS
     Dosage: 5 MG, 2X/WEEK
     Route: 058
  15. GOLD [Suspect]
     Active Substance: GOLD
     Indication: PRODUCT USED FOR UNKNOWN INDICATION
  16. CELEBREX [Concomitant]
     Active Substance: CELECOXIB
     Dosage: 400 MG
     Route: 048
  17. WINRHO SDF [Suspect]
     Active Substance: HUMAN RHO(D) IMMUNE GLOBULIN
     Indication: PRODUCT USED FOR UNKNOWN INDICATION
  18. HUMIRA [Suspect]
     Active Substance: ADALIMUMAB
     Dosage: 40 MG, 2X/WEEK
     Route: 058
  19. PREDNISONE. [Concomitant]
     Active Substance: PREDNISONE
     Dosage: 15 MG, 1X/WEEK
  20. XELJANZ [Concomitant]
     Active Substance: TOFACITINIB CITRATE
     Dosage: 5 MG, 2X/DAY
     Route: 048
  21. BORIC ACID [Suspect]
     Active Substance: BORIC ACID
     Indication: PRODUCT USED FOR UNKNOWN INDICATION
  22. HUMIRA [Suspect]
     Active Substance: ADALIMUMAB
     Indication: RHEUMATOID ARTHRITIS
     Dosage: 40 MG; 1 EVERY 2 WEEKS
     Route: 058
  23. TOFACITINIB CITRATE [Suspect]
     Active Substance: TOFACITINIB CITRATE
     Dosage: 10 MG, 2X/WEEK
  24. SULFASALAZINE. [Suspect]
     Active Substance: SULFASALAZINE
     Route: 048
  25. DISODIUM EDETATE [Suspect]
     Active Substance: EDETATE DISODIUM
     Indication: PRODUCT USED FOR UNKNOWN INDICATION
  26. PHENYLEPHRINE HYDROCHLORIDE. [Suspect]
     Active Substance: PHENYLEPHRINE HYDROCHLORIDE
     Indication: PRODUCT USED FOR UNKNOWN INDICATION
  27. METHOTREXATE. [Suspect]
     Active Substance: METHOTREXATE
     Indication: RHEUMATOID ARTHRITIS
     Route: 058
  28. SIMPONI [Suspect]
     Active Substance: GOLIMUMAB
     Indication: PRODUCT USED FOR UNKNOWN INDICATION
  29. LIPITOR [Concomitant]
     Active Substance: ATORVASTATIN CALCIUM
     Dosage: 10 MG, 1X/DAY
     Route: 048
  30. ORENCIA [Suspect]
     Active Substance: ABATACEPT
     Indication: PRODUCT USED FOR UNKNOWN INDICATION
     Route: 042
  31. IBUPROFEN. [Concomitant]
     Active Substance: IBUPROFEN
     Dosage: 400 MG
     Route: 048

REACTIONS (22)
  - C-reactive protein abnormal [Unknown]
  - Infection [Unknown]
  - Musculoskeletal stiffness [Unknown]
  - Joint injury [Unknown]
  - Pulmonary toxicity [Unknown]
  - Treatment failure [Unknown]
  - Arthropathy [Unknown]
  - Joint stiffness [Unknown]
  - Rheumatoid arthritis [Unknown]
  - Joint swelling [Unknown]
  - Condition aggravated [Unknown]
  - Hepatotoxicity [Unknown]
  - Musculoskeletal pain [Unknown]
  - Drug ineffective [Unknown]
  - Neoplasm malignant [Unknown]
  - Pain in extremity [Unknown]
  - Therapeutic product effect incomplete [Unknown]
  - Therapy non-responder [Unknown]
  - Arthralgia [Unknown]
  - Gastrointestinal toxicity [Unknown]
  - Drug hypersensitivity [Unknown]
  - Drug intolerance [Unknown]
